FAERS Safety Report 6382529-2 (Version None)
Quarter: 2009Q3

REPORT INFORMATION
  Report Type: 
  Country: None (occurrence: None)
  Receive Date: 20090928
  Receipt Date: 20090928
  Transmission Date: 20100115
  Serious: Yes (Hospitalization)
  Sender: FDA-Public Use
  Company Number: None

PATIENT
  Age: 50 Year
  Sex: Male
  Weight: 103 kg

DRUGS (2)
  1. ARIXTRA [Suspect]
     Indication: DEEP VEIN THROMBOSIS
     Dosage: 10 MG DAILY SQ
     Route: 058
     Dates: start: 20090514, end: 20090729
  2. ARIXTRA [Suspect]
     Indication: PULMONARY EMBOLISM
     Dosage: 10 MG DAILY SQ
     Route: 058
     Dates: start: 20090514, end: 20090729

REACTIONS (4)
  - DEEP VEIN THROMBOSIS [None]
  - INTESTINAL PERFORATION [None]
  - POST PROCEDURAL COMPLICATION [None]
  - STENT-GRAFT MALFUNCTION [None]
